FAERS Safety Report 5529022-4 (Version None)
Quarter: 2007Q4

REPORT INFORMATION
  Report Type: 
  Country: None (occurrence: None)
  Receive Date: 20071129
  Receipt Date: 20071123
  Transmission Date: 20080405
  Serious: Yes (Other)
  Sender: FDA-Public Use
  Company Number: BR-AVENTIS-200720841GDDC

PATIENT
  Age: 39 Year
  Sex: Male
  Weight: 90 kg

DRUGS (4)
  1. LANTUS [Suspect]
     Route: 058
     Dates: start: 20050101, end: 20071001
  2. LANTUS [Suspect]
     Route: 058
     Dates: start: 20071001
  3. OPTIPEN (INSULIN PUMP) [Suspect]
     Route: 058
     Dates: start: 20050101
  4. METFORMIN HCL [Concomitant]
     Dosage: DOSE QUANTITY: 1
     Route: 048
     Dates: start: 20070501

REACTIONS (3)
  - DIABETIC KETOACIDOSIS [None]
  - HYPERGLYCAEMIA [None]
  - HYPOGLYCAEMIA [None]
